FAERS Safety Report 22194522 (Version 1)
Quarter: 2023Q2

REPORT INFORMATION
  Report Type: Other
  Country: TR (occurrence: None)
  Receive Date: 20230411
  Receipt Date: 20230411
  Transmission Date: 20230721
  Serious: Yes (Other)
  Sender: FDA-Public Use
  Company Number: TR-ROCHE-3328450

PATIENT

DRUGS (1)
  1. TOCILIZUMAB [Suspect]
     Active Substance: TOCILIZUMAB
     Indication: COVID-19
     Dosage: 1X200-400 MG
     Route: 065

REACTIONS (2)
  - Hepatic enzyme increased [Unknown]
  - Off label use [Unknown]
